FAERS Safety Report 4371602-6 (Version None)
Quarter: 2004Q2

REPORT INFORMATION
  Report Type: 
  Country: None (occurrence: None)
  Receive Date: 20040601
  Receipt Date: 20040519
  Transmission Date: 20050107
  Serious: Yes (Other)
  Sender: FDA-Public Use
  Company Number: 2004033942

PATIENT
  Age: 32 Year
  Sex: Male
  Weight: 95.2554 kg

DRUGS (5)
  1. ZOLOFT [Suspect]
     Indication: PANIC DISORDER
     Dosage: 50 MG, ORAL
     Route: 048
  2. NEURONTIN [Suspect]
     Indication: NERVE INJURY
     Dates: start: 20020101, end: 20040101
  3. ESOMEPRAZOLE (ESOMEPRAZOLE) [Suspect]
     Indication: GASTROOESOPHAGEAL REFLUX DISEASE
  4. HYDROMORPHONE HCL [Concomitant]
  5. MORPHINE [Concomitant]

REACTIONS (12)
  - ABNORMAL DREAMS [None]
  - ACCIDENT [None]
  - CONDITION AGGRAVATED [None]
  - DEPRESSION [None]
  - DRUG EFFECT DECREASED [None]
  - GASTROOESOPHAGEAL REFLUX DISEASE [None]
  - HEADACHE [None]
  - HYPOAESTHESIA [None]
  - NERVE INJURY [None]
  - PAIN [None]
  - SUICIDAL IDEATION [None]
  - TREATMENT NONCOMPLIANCE [None]
